FAERS Safety Report 13428802 (Version 1)
Quarter: 2017Q2

REPORT INFORMATION
  Report Type: Spontaneous
  Country: IT (occurrence: IT)
  Receive Date: 20170411
  Receipt Date: 20170411
  Transmission Date: 20170830
  Serious: Yes (Other)
  Sender: FDA-Public Use
  Company Number: IT-IMPAX LABORATORIES, INC-2017-IPXL-00934

PATIENT
  Age: 78 Year
  Sex: Female

DRUGS (6)
  1. CARBIDOPA-LEVODOPA ER [Suspect]
     Active Substance: CARBIDOPA\LEVODOPA
     Indication: ON AND OFF PHENOMENON
     Dosage: UNK; INFUSION; INCREASED FLOW
     Route: 065
  2. LEVODOPA [Suspect]
     Active Substance: LEVODOPA
     Indication: ON AND OFF PHENOMENON
  3. CARBIDOPA-LEVODOPA ER [Suspect]
     Active Substance: CARBIDOPA\LEVODOPA
     Indication: PARKINSON^S DISEASE
     Dosage: UNK; INFUSION; 1100 MG/DAY (L-DOPA LEDD)
     Route: 065
  4. ROPINIROLE HYDROCHLORIDE. [Suspect]
     Active Substance: ROPINIROLE HYDROCHLORIDE
     Indication: ON AND OFF PHENOMENON
  5. ROPINIROLE HYDROCHLORIDE. [Suspect]
     Active Substance: ROPINIROLE HYDROCHLORIDE
     Indication: PARKINSON^S DISEASE
     Dosage: UNK; 80 MG/DAY (LEDD)
     Route: 065
  6. LEVODOPA [Suspect]
     Active Substance: LEVODOPA
     Indication: PARKINSON^S DISEASE
     Dosage: UNK; 800 MG/DAY (LEDD)
     Route: 065

REACTIONS (1)
  - Drug withdrawal syndrome [Recovered/Resolved]
